FAERS Safety Report 4466320-X (Version None)
Quarter: 2004Q4

REPORT INFORMATION
  Report Type: 
  Country: None (occurrence: None)
  Receive Date: 20041005
  Receipt Date: 20041001
  Transmission Date: 20050328
  Serious: Yes (Hospitalization)
  Sender: FDA-Public Use
  Company Number: US-GLAXOSMITHKLINE-A0528136A

PATIENT
  Age: 46 Year
  Sex: Male

DRUGS (1)
  1. WELLBUTRIN SR [Suspect]
     Indication: DEPRESSION
     Dosage: 200MG PER DAY
     Route: 048

REACTIONS (6)
  - DEPRESSION [None]
  - DIFFICULTY IN WALKING [None]
  - EATING DISORDER [None]
  - HEADACHE [None]
  - SPEECH DISORDER [None]
  - SUICIDAL IDEATION [None]
